FAERS Safety Report 10419156 (Version 1)
Quarter: 2014Q2

REPORT INFORMATION
  Report Type: Spontaneous
  Country: US (occurrence: None)
  Receive Date: 20140617
  Receipt Date: 20140617
  Transmission Date: 20141212
  Serious: Yes (Other)
  Sender: FDA-Public Use
  Company Number: 1251221

PATIENT
  Age: 66 Year
  Sex: Female
  Weight: 75 kg

DRUGS (5)
  1. ACTERMA 5% TWO INFUSION DOSES [Suspect]
     Indication: RHEUMATOID ARTHRITIS
     Dosage: (8 MG/KG, 1 IN 4 WK), INTRAVENOUS (NOT OTHERWISE SPECIFIED)
     Route: 042
  2. ATORVASTATIN CALCIUM [Concomitant]
  3. OMEPRAZOLE [Concomitant]
  4. PLAQUENIL (HYDROCYCHLOROQUINE SULFATE) [Concomitant]
  5. PYRIDOXINE [Concomitant]

REACTIONS (2)
  - Upper respiratory tract infection [None]
  - Disease recurrence [None]
